FAERS Safety Report 13725718 (Version 2)
Quarter: 2018Q1

REPORT INFORMATION
  Report Type: Report from Study
  Country: BE (occurrence: BE)
  Receive Date: 20170707
  Receipt Date: 20180105
  Transmission Date: 20180508
  Serious: Yes (Hospitalization)
  Sender: FDA-Public Use
  Company Number: BE-PFIZER INC-2017290098

PATIENT
  Age: 71 Year
  Sex: Female
  Weight: 86 kg

DRUGS (4)
  1. MEDROL [Suspect]
     Active Substance: METHYLPREDNISOLONE
     Indication: RENAL TRANSPLANT
     Dosage: 10 MG, DAILY
     Route: 048
     Dates: start: 20150804, end: 20151002
  2. CELLCEPT [Concomitant]
     Active Substance: MYCOPHENOLATE MOFETIL\MYCOPHENOLATE MOFETIL HYDROCHLORIDE
     Dosage: 750 MG, UNK
     Dates: start: 20150512
  3. TACROLIMUS. [Concomitant]
     Active Substance: TACROLIMUS
     Dosage: 3 MG
     Dates: start: 20150806
  4. MEDROL [Suspect]
     Active Substance: METHYLPREDNISOLONE
     Dosage: 5 MG, DAILY
     Route: 048
     Dates: start: 20151003

REACTIONS (1)
  - Cataract [Recovered/Resolved]

NARRATIVE: CASE EVENT DATE: 20151002
